FAERS Safety Report 17367018 (Version 2)
Quarter: 2020Q1

REPORT INFORMATION
  Report Type: Spontaneous
  Country: US (occurrence: US)
  Receive Date: 20200204
  Receipt Date: 20200214
  Transmission Date: 20200409
  Serious: No
  Sender: FDA-Public Use
  Company Number: US-BAYER-2020-017750

PATIENT
  Sex: Female

DRUGS (1)
  1. LOTRIMIN ULTRA ANTIFUNGAL [Suspect]
     Active Substance: BUTENAFINE HYDROCHLORIDE
     Indication: THERAPEUTIC SKIN CARE TOPICAL
     Dosage: A THIN LAYER OVER AFFECTED AREA, BID
     Route: 061
     Dates: start: 201912

REACTIONS (3)
  - Product lot number issue [None]
  - Drug ineffective [Unknown]
  - Product expiration date issue [None]
